FAERS Safety Report 9247639 (Version 2)
Quarter: 2013Q2

REPORT INFORMATION
  Report Type: Report from Study
  Country: US (occurrence: US)
  Receive Date: 20130423
  Receipt Date: 20130607
  Transmission Date: 20140414
  Serious: Yes (Death, Other)
  Sender: FDA-Public Use
  Company Number: PHEH2013US008897

PATIENT
  Age: 63 Year
  Sex: Male

DRUGS (3)
  1. SANDOSTATIN LAR DEPOT [Suspect]
     Indication: METASTATIC CARCINOID TUMOUR
     Dosage: UNK UKN, UNK
     Route: 030
  2. OXYCODONE [Concomitant]
     Indication: PAIN
     Dosage: UNK UKN, UNK
  3. OXYCONTIN [Concomitant]
     Indication: PAIN
     Dosage: UNK UKN, UNK

REACTIONS (17)
  - Hepatic failure [Fatal]
  - Metastases to liver [Fatal]
  - Vascular compression [Unknown]
  - Metastases to bone [Unknown]
  - Metastases to retroperitoneum [Unknown]
  - Metastases to abdominal cavity [Unknown]
  - Oedema peripheral [Unknown]
  - Scrotal oedema [Unknown]
  - Ascites [Unknown]
  - Abdominal mass [Unknown]
  - Abdominal distension [Unknown]
  - Cancer pain [Unknown]
  - Lethargy [Unknown]
  - Blood pressure decreased [Unknown]
  - Malabsorption [Unknown]
  - Pancreatic enzymes decreased [Unknown]
  - Drug resistance [Unknown]
